FAERS Safety Report 6312758-5 (Version None)
Quarter: 2009Q3

REPORT INFORMATION
  Report Type: 
  Country: None (occurrence: None)
  Receive Date: 20090818
  Receipt Date: 20090806
  Transmission Date: 20100115
  Serious: Yes (Hospitalization)
  Sender: FDA-Public Use
  Company Number: GB-JNJFOC-20090802771

PATIENT
  Age: 67 Year
  Sex: Female
  Weight: 68 kg

DRUGS (2)
  1. REMICADE [Suspect]
     Dosage: 2ND DOSE AFTER TREATMENT GAP
     Route: 042
  2. REMICADE [Suspect]
     Indication: RHEUMATOID ARTHRITIS
     Route: 042

REACTIONS (6)
  - BACK PAIN [None]
  - COLD SWEAT [None]
  - DRUG INEFFECTIVE [None]
  - HEART RATE INCREASED [None]
  - INFUSION RELATED REACTION [None]
  - TREMOR [None]
